FAERS Safety Report 14695839 (Version 1)
Quarter: 2018Q1

REPORT INFORMATION
  Report Type: Spontaneous
  Country: US (occurrence: US)
  Receive Date: 20180328
  Receipt Date: 20180328
  Transmission Date: 20180509
  Serious: Yes (Other)
  Sender: FDA-Public Use
  Company Number: None

PATIENT
  Age: 35 Year
  Sex: Female
  Weight: 75.6 kg

DRUGS (1)
  1. ZYRTEC [Suspect]
     Active Substance: CETIRIZINE HYDROCHLORIDE
     Indication: URTICARIA
     Dosage: ?          QUANTITY:1 TABLET(S);?
     Route: 048
     Dates: start: 20161201, end: 20161201

REACTIONS (12)
  - Urticaria [None]
  - Weight decreased [None]
  - Depression [None]
  - Fluid retention [None]
  - Peripheral swelling [None]
  - Fatigue [None]
  - Pruritus [None]
  - Withdrawal syndrome [None]
  - Somnolence [None]
  - Irritability [None]
  - Anxiety [None]
  - Disturbance in attention [None]

NARRATIVE: CASE EVENT DATE: 20180322
